FAERS Safety Report 4718507-6 (Version None)
Quarter: 2005Q3

REPORT INFORMATION
  Report Type: 
  Country: None (occurrence: None)
  Receive Date: 20050720
  Receipt Date: 20021023
  Transmission Date: 20060218
  Serious: Yes (Death, Life-Threatening, Hospitalization, Other)
  Sender: FDA-Public Use
  Company Number: PHBS2002JP12908

PATIENT
  Age: 53 Year
  Sex: Male
  Weight: 76 kg

DRUGS (11)
  1. GASMOTIN [Concomitant]
     Dates: start: 20010904
  2. MAGNESIUM OXIDE [Concomitant]
     Dates: start: 20010904
  3. LENDORMIN [Concomitant]
     Dates: start: 20010904
  4. LUDIOMIL [Concomitant]
     Dates: start: 20010920
  5. TORSEMIDE [Concomitant]
     Dates: start: 20011126
  6. GLEEVEC [Suspect]
     Indication: GASTROINTESTINAL STROMAL TUMOUR
     Dosage: 300 MG, QD
     Route: 048
     Dates: start: 20011211, end: 20020115
  7. GLEEVEC [Suspect]
     Dosage: 300 MG/D
     Route: 048
     Dates: start: 20020214, end: 20020306
  8. GLEEVEC [Suspect]
     Dosage: 100 MG/D
     Route: 048
     Dates: start: 20020321, end: 20020324
  9. GLEEVEC [Suspect]
     Dosage: 200 MG/D
     Route: 048
     Dates: start: 20020325
  10. MOSAPRIDE CITRATE [Concomitant]
     Dates: start: 20010904
  11. TORSEMIDE [Concomitant]
     Dates: start: 20011126

REACTIONS (12)
  - DERMATITIS [None]
  - HAEMOGLOBIN DECREASED [None]
  - HEPATIC ENCEPHALOPATHY [None]
  - INTRA-ABDOMINAL HAEMORRHAGE [None]
  - LIP EROSION [None]
  - MALIGNANT NEOPLASM PROGRESSION [None]
  - OEDEMA [None]
  - PRURITUS [None]
  - PYREXIA [None]
  - RASH [None]
  - RASH PAPULAR [None]
  - TUMOUR HAEMORRHAGE [None]
